FAERS Safety Report 10573612 (Version 1)
Quarter: 2014Q4

REPORT INFORMATION
  Report Type: Spontaneous
  Country: CI (occurrence: None)
  Receive Date: 20141030
  Receipt Date: 20141030
  Transmission Date: 20150529
  Serious: Yes (Other)
  Sender: FDA-Public Use
  Company Number: PHHY2014CI055455

PATIENT
  Age: 55 Year
  Sex: Male

DRUGS (4)
  1. SEBIVO [Suspect]
     Active Substance: TELBIVUDINE
     Indication: HEPATITIS B E ANTIGEN NEGATIVE
     Route: 048
     Dates: start: 20100818, end: 20120814
  2. SEBIVO [Suspect]
     Active Substance: TELBIVUDINE
     Indication: CHRONIC HEPATITIS B
     Route: 048
     Dates: start: 20100818, end: 20120814
  3. COLTRAMYL (THIOCOLCHICOSIDE) [Concomitant]
  4. TRABAR (TRAMADOL HYDROCHLORIDE) [Concomitant]

REACTIONS (5)
  - Paraesthesia [None]
  - Gait disturbance [None]
  - Peripheral motor neuropathy [None]
  - Myalgia [None]
  - Peripheral sensory neuropathy [None]

NARRATIVE: CASE EVENT DATE: 20120814
